FAERS Safety Report 20044858 (Version 1)
Quarter: 2021Q4

REPORT INFORMATION
  Report Type: Spontaneous
  Country: US (occurrence: US)
  Receive Date: 20211108
  Receipt Date: 20211108
  Transmission Date: 20220303
  Serious: Yes (Other)
  Sender: FDA-Public Use
  Company Number: US-PFIZER INC-202101446444

PATIENT
  Age: 41 Year
  Sex: Male

DRUGS (2)
  1. SOLU-MEDROL [Suspect]
     Active Substance: METHYLPREDNISOLONE SODIUM SUCCINATE
     Indication: Lupus nephritis
     Dosage: UNK
     Route: 042
  2. MYCOPHENOLIC ACID [Suspect]
     Active Substance: MYCOPHENOLIC ACID
     Indication: Lupus nephritis

REACTIONS (2)
  - Meningitis bacterial [Unknown]
  - Endocarditis bacterial [Unknown]
